FAERS Safety Report 9677040 (Version 3)
Quarter: 2014Q1

REPORT INFORMATION
  Report Type: Spontaneous
  Country: US (occurrence: US)
  Receive Date: 20131108
  Receipt Date: 20140328
  Transmission Date: 20141002
  Serious: No
  Sender: FDA-Public Use
  Company Number: US-BIOGENIDEC-2013BI105830

PATIENT
  Sex: Female

DRUGS (2)
  1. AVONEX [Suspect]
     Indication: MULTIPLE SCLEROSIS
     Route: 030
  2. AVONEX [Suspect]
     Indication: MULTIPLE SCLEROSIS
     Route: 030
     Dates: start: 20080208, end: 20081001

REACTIONS (7)
  - Rash [Unknown]
  - Eczema nummular [Unknown]
  - Skin reaction [Recovered/Resolved]
  - Mobility decreased [Recovered/Resolved]
  - Adverse event [Recovered/Resolved]
  - Influenza like illness [Unknown]
  - Malaise [Unknown]
